FAERS Safety Report 7833830-4 (Version None)
Quarter: 2011Q4

REPORT INFORMATION
  Report Type: 
  Country: None (occurrence: None)
  Receive Date: 20111024
  Receipt Date: 20111019
  Transmission Date: 20120403
  Serious: Yes (Hospitalization)
  Sender: FDA-Public Use
  Company Number: US-GLAXOSMITHKLINE-A0949721A

PATIENT
  Age: 54 Year
  Sex: Female

DRUGS (3)
  1. VENTOLIN [Concomitant]
  2. ALLEGRA [Concomitant]
  3. ADVAIR DISKUS 100/50 [Suspect]
     Indication: ASTHMA
     Dosage: 1PUFF TWICE PER DAY
     Route: 055
     Dates: start: 20040101, end: 20101220

REACTIONS (4)
  - EMPHYSEMA [None]
  - TINEA INFECTION [None]
  - DYSPNOEA [None]
  - ORAL CANDIDIASIS [None]
